FAERS Safety Report 12993380 (Version 3)
Quarter: 2017Q1

REPORT INFORMATION
  Report Type: Spontaneous
  Country: RU (occurrence: RU)
  Receive Date: 20161202
  Receipt Date: 20170105
  Transmission Date: 20170428
  Serious: Yes (Other)
  Sender: FDA-Public Use
  Company Number: RU-ASTRAZENECA-2016SF26902

PATIENT
  Age: 58 Year
  Sex: Female
  Weight: 83 kg

DRUGS (5)
  1. ROSUCARD [Concomitant]
     Active Substance: ROSUVASTATIN CALCIUM
  2. THROMBO ASS [Concomitant]
     Active Substance: ASPIRIN
  3. NIPERTEN [Concomitant]
  4. PREDUCTAL [Concomitant]
     Active Substance: TRIMETAZIDINE DIHYDROCHLORIDE
  5. BRILINTA [Suspect]
     Active Substance: TICAGRELOR
     Indication: MYOCARDIAL INFARCTION
     Route: 048
     Dates: start: 201511

REACTIONS (3)
  - Acute myocardial infarction [Recovered/Resolved]
  - Anxiety [Not Recovered/Not Resolved]
  - Chest pain [Not Recovered/Not Resolved]

NARRATIVE: CASE EVENT DATE: 20160505
